FAERS Safety Report 7868852-0 (Version None)
Quarter: 2011Q4

REPORT INFORMATION
  Report Type: 
  Country: None (occurrence: None)
  Receive Date: 20111025
  Receipt Date: 20111011
  Transmission Date: 20120403
  Serious: Yes (Other)
  Sender: FDA-Public Use
  Company Number: DSA_47914_2011

PATIENT
  Sex: Male

DRUGS (1)
  1. WELLBUTRIN XL [Suspect]
     Indication: DISTURBANCE IN ATTENTION
     Dosage: 150 MG, DAILY ORAL
     Route: 048
     Dates: start: 20110301

REACTIONS (1)
  - PNEUMONITIS [None]
